FAERS Safety Report 9836108 (Version 2)
Quarter: 2014Q1

REPORT INFORMATION
  Report Type: Report from Study
  Country: BE (occurrence: BE)
  Receive Date: 20140123
  Receipt Date: 20140123
  Transmission Date: 20141002
  Serious: Yes (Death)
  Sender: FDA-Public Use
  Company Number: BE-ROCHE-1182337

PATIENT
  Age: 40 Year
  Sex: Male
  Weight: 90 kg

DRUGS (2)
  1. AVASTIN [Suspect]
     Indication: GLIOBLASTOMA
     Route: 065
     Dates: start: 20110530
  2. MEDROL [Concomitant]
     Indication: GLIOBLASTOMA
     Route: 065

REACTIONS (2)
  - Disease progression [Fatal]
  - Thrombocytopenia [Recovering/Resolving]
